FAERS Safety Report 5310951-1 (Version None)
Quarter: 2007Q2

REPORT INFORMATION
  Report Type: 
  Country: None (occurrence: None)
  Receive Date: 20070426
  Receipt Date: 20070426
  Transmission Date: 20071010
  Serious: Yes (Hospitalization)
  Sender: FDA-Public Use
  Company Number: None

PATIENT
  Age: 45 Year
  Sex: Male

DRUGS (3)
  1. SEROQUEL [Suspect]
     Indication: SCHIZOAFFECTIVE DISORDER
  2. WELLBUTRIN [Suspect]
     Indication: DEPRESSION
  3. TRAZODONE HCL [Suspect]
     Indication: DEPRESSION

REACTIONS (1)
  - PRIAPISM [None]
